FAERS Safety Report 23390645 (Version 1)
Quarter: 2024Q1

REPORT INFORMATION
  Report Type: Spontaneous
  Country: ES (occurrence: None)
  Receive Date: 20240111
  Receipt Date: 20240111
  Transmission Date: 20240409
  Serious: Yes (Other)
  Sender: FDA-Public Use
  Company Number: 2024A001618

PATIENT
  Age: 52 Year
  Sex: Female

DRUGS (2)
  1. SYMBICORT [Suspect]
     Active Substance: BUDESONIDE\FORMOTEROL FUMARATE DIHYDRATE
     Dosage: 2 DOSES EVERY 12 HOURS
     Route: 055
     Dates: start: 20230119, end: 20230121
  2. ENALAPRIL [Concomitant]
     Active Substance: ENALAPRIL
     Dosage: 1/24 HORAS
     Route: 048
     Dates: start: 20161205

REACTIONS (2)
  - Dyspnoea [Recovered/Resolved]
  - Pruritus allergic [Recovered/Resolved]

NARRATIVE: CASE EVENT DATE: 20230121
